FAERS Safety Report 4385827-7 (Version None)
Quarter: 2004Q2

REPORT INFORMATION
  Report Type: 
  Country: None (occurrence: None)
  Receive Date: 20040628
  Receipt Date: 20040618
  Transmission Date: 20050107
  Serious: Yes (Other)
  Sender: FDA-Public Use
  Company Number: US-ROCHE-371667

PATIENT
  Age: 19 Year
  Sex: Female

DRUGS (3)
  1. ORLISTAT [Suspect]
     Indication: DRUG USE FOR UNKNOWN INDICATION
     Route: 065
  2. LAMICTAL [Suspect]
     Indication: EPILEPSY
     Route: 048
  3. KEPPRA [Concomitant]

REACTIONS (1)
  - CONVULSION [None]
